FAERS Safety Report 9793087 (Version 1)
Quarter: 2014Q1

REPORT INFORMATION
  Report Type: Spontaneous
  Country: CH (occurrence: CH)
  Receive Date: 20140102
  Receipt Date: 20140102
  Transmission Date: 20141002
  Serious: Yes (Hospitalization, Other)
  Sender: FDA-Public Use
  Company Number: CH-TEVA-452338ISR

PATIENT
  Age: 63 Year
  Sex: Male

DRUGS (8)
  1. SIMVASTATIN [Suspect]
     Indication: HYPERCHOLESTEROLAEMIA
     Dosage: 40 MILLIGRAM DAILY; LONG TERM
     Route: 048
  2. BRILIQUE [Interacting]
     Indication: ACUTE MYOCARDIAL INFARCTION
     Dosage: 180 MILLIGRAM DAILY;
     Route: 048
     Dates: start: 20131012, end: 20131118
  3. ASPIRIN CARDIO [Interacting]
     Indication: ACUTE MYOCARDIAL INFARCTION
     Dosage: 100 MILLIGRAM DAILY; CONTINUING
     Route: 048
     Dates: start: 20131012
  4. LISINOPRIL [Concomitant]
     Indication: ESSENTIAL HYPERTENSION
     Dosage: 5 MILLIGRAM DAILY; LONG TERM
     Route: 048
  5. BELOK ZOK [Concomitant]
     Indication: ACUTE MYOCARDIAL INFARCTION
     Dosage: 50 MILLIGRAM DAILY; LONG TERM
     Route: 048
  6. NEXIUM MUPS [Concomitant]
     Indication: GASTRIC ULCER
     Dosage: 40 MILLIGRAM DAILY; LONG TERM
     Route: 048
  7. ZOLPIDEM [Concomitant]
     Indication: INSOMNIA
     Dosage: 10 MILLIGRAM DAILY; LONG TERM
     Route: 048
  8. MOVICOL [Concomitant]
     Indication: CONSTIPATION
     Dosage: LONG TERM
     Route: 048

REACTIONS (3)
  - Haemoptysis [Recovered/Resolved]
  - Drug interaction [Unknown]
  - Acute myocardial infarction [Unknown]
